FAERS Safety Report 8197678-6 (Version None)
Quarter: 2012Q1

REPORT INFORMATION
  Report Type: 
  Country: None (occurrence: None)
  Receive Date: 20120309
  Receipt Date: 20120302
  Transmission Date: 20120608
  Serious: Yes (Other)
  Sender: FDA-Public Use
  Company Number: GB-ROCHE-1028435

PATIENT
  Sex: Male
  Weight: 116 kg

DRUGS (3)
  1. AZULFIDINE [Concomitant]
  2. METHOTREXATE [Concomitant]
  3. MABTHERA [Suspect]
     Indication: RHEUMATOID ARTHRITIS
     Route: 065
     Dates: start: 20070924

REACTIONS (2)
  - NEUTROPENIA [None]
  - GRANULOCYTES MATURATION ARREST [None]
